FAERS Safety Report 7404320-8 (Version None)
Quarter: 2011Q2

REPORT INFORMATION
  Report Type: 
  Country: None (occurrence: None)
  Receive Date: 20110408
  Receipt Date: 20110329
  Transmission Date: 20111010
  Serious: Yes (Death, Hospitalization)
  Sender: FDA-Public Use
  Company Number: RU-ROCHE-768447

PATIENT
  Sex: Female
  Weight: 86 kg

DRUGS (3)
  1. CAPECITABINE [Suspect]
     Indication: BREAST CANCER
     Dosage: FREQUENCY: CYCLICALLY FROM DAY 1 TO DAY 14 EVERY 3 WEEKLY.
     Route: 048
     Dates: start: 20101005
  2. IRON [Concomitant]
     Dates: start: 20100401
  3. VINFLUNINE [Suspect]
     Indication: BREAST CANCER
     Dosage: FREQUNCY: CYCLICALLY, ON DAY 1 OF EVERY 3 WEEK CYCLE.
     Route: 042
     Dates: start: 20101005

REACTIONS (3)
  - FEBRILE NEUTROPENIA [None]
  - BREAST NEOPLASM [None]
  - PANCYTOPENIA [None]
